FAERS Safety Report 24831768 (Version 1)
Quarter: 2025Q1

REPORT INFORMATION
  Report Type: Spontaneous
  Country: US (occurrence: US)
  Receive Date: 20250110
  Receipt Date: 20250110
  Transmission Date: 20250409
  Serious: No
  Sender: Haleon PLC
  Company Number: US-HALEON-2221435

PATIENT
  Age: 52 Year
  Sex: Female

DRUGS (2)
  1. ABREVA RAPID PAIN RELIEF [Suspect]
     Active Substance: GLYCERIN\LIDOCAINE HYDROCHLORIDE
     Indication: Oral herpes
     Dates: start: 20241226, end: 20250109
  2. ABREVA [Suspect]
     Active Substance: DOCOSANOL
     Indication: Oral herpes
     Dates: start: 20241226, end: 20250109

REACTIONS (1)
  - Drug ineffective [Unknown]
